FAERS Safety Report 15767478 (Version 2)
Quarter: 2019Q2

REPORT INFORMATION
  Report Type: Spontaneous
  Country: DE (occurrence: DE)
  Receive Date: 20181227
  Receipt Date: 20190424
  Transmission Date: 20190711
  Serious: Yes (Life-Threatening, Other)
  Sender: FDA-Public Use
  Company Number: DE-GUERBET-DE-20180142

PATIENT
  Age: 51 Year
  Sex: Female
  Weight: 65 kg

DRUGS (4)
  1. PREDNISOLON [Concomitant]
     Active Substance: PREDNISOLONE
     Indication: PRODUCT USED FOR UNKNOWN INDICATION
     Route: 065
  2. DOTAREM [Suspect]
     Active Substance: GADOTERATE MEGLUMINE
     Indication: NUCLEAR MAGNETIC RESONANCE IMAGING
     Route: 042
     Dates: start: 20181126, end: 20181126
  3. DOTAREM [Suspect]
     Active Substance: GADOTERATE MEGLUMINE
     Dosage: NACH TELEFONISCHER AUSKUNFT 14 ML
     Route: 042
     Dates: start: 20181126, end: 20181126
  4. VIANI FORTE [Concomitant]
     Active Substance: FLUTICASONE PROPIONATE\SALMETEROL XINAFOATE
     Indication: PRODUCT USED FOR UNKNOWN INDICATION
     Route: 065

REACTIONS (26)
  - Paraesthesia [Not Recovered/Not Resolved]
  - Dizziness [Not Recovered/Not Resolved]
  - Peripheral coldness [Recovering/Resolving]
  - Feeling cold [Recovered/Resolved]
  - Cardiovascular disorder [Recovered/Resolved]
  - Pharyngeal swelling [Recovering/Resolving]
  - Contrast media reaction [Unknown]
  - Headache [Recovered/Resolved]
  - Visual impairment [Not Recovered/Not Resolved]
  - Palpitations [Not Recovered/Not Resolved]
  - Balance disorder [Not Recovered/Not Resolved]
  - Dyspnoea [Recovered/Resolved]
  - Dry mouth [Recovered/Resolved]
  - Hypoaesthesia [Not Recovered/Not Resolved]
  - Language disorder [Recovered/Resolved]
  - Impaired work ability [Not Recovered/Not Resolved]
  - Anxiety [Recovered/Resolved]
  - Cough [Not Recovered/Not Resolved]
  - Tremor [Recovered/Resolved]
  - Flushing [Recovered/Resolved]
  - Peripheral swelling [Recovered/Resolved]
  - Weight bearing difficulty [Not Recovered/Not Resolved]
  - Vomiting [Recovered/Resolved]
  - Anaphylactic reaction [Recovered/Resolved]
  - Malaise [Not Recovered/Not Resolved]
  - Gait disturbance [Unknown]

NARRATIVE: CASE EVENT DATE: 2018
